FAERS Safety Report 9934214 (Version 1)
Quarter: 2014Q1

REPORT INFORMATION
  Report Type: Spontaneous
  Country: US (occurrence: None)
  Receive Date: 20140228
  Receipt Date: 20140228
  Transmission Date: 20141002
  Serious: Yes (Other)
  Sender: FDA-Public Use
  Company Number: None

PATIENT
  Age: 51 Year
  Sex: Male
  Weight: 63.5 kg

DRUGS (1)
  1. BEVACIZUMAB [Suspect]
     Indication: CYSTOID MACULAR OEDEMA
     Route: 047
     Dates: start: 20140121

REACTIONS (5)
  - Eye pain [None]
  - Ocular hyperaemia [None]
  - Vision blurred [None]
  - Product compounding quality issue [None]
  - Fungal test positive [None]
